FAERS Safety Report 10218564 (Version 9)
Quarter: 2016Q1

REPORT INFORMATION
  Report Type: Report from Study
  Country: US (occurrence: US)
  Receive Date: 20140605
  Receipt Date: 20160113
  Transmission Date: 20160525
  Serious: Yes (Hospitalization, Other)
  Sender: FDA-Public Use
  Company Number: US-AMGEN INC.-USASP2014041383

PATIENT
  Age: 75 Year
  Sex: Female

DRUGS (4)
  1. ENBREL [Suspect]
     Active Substance: ETANERCEPT
     Dosage: UNK UNK, UNK
     Route: 065
  2. ENBREL [Suspect]
     Active Substance: ETANERCEPT
     Dosage: UNK
     Route: 065
  3. ENBREL [Suspect]
     Active Substance: ETANERCEPT
     Indication: RHEUMATOID ARTHRITIS
     Dosage: 50 MG, QWK
     Route: 065
     Dates: start: 199812
  4. PREDNISONE. [Concomitant]
     Active Substance: PREDNISONE
     Dosage: UNK

REACTIONS (26)
  - Nausea [Recovered/Resolved]
  - Abdominal pain [Recovered/Resolved]
  - Colonic abscess [Recovered/Resolved]
  - Joint swelling [Not Recovered/Not Resolved]
  - Impaired healing [Not Recovered/Not Resolved]
  - Back pain [Recovered/Resolved]
  - Intestinal perforation [Recovered/Resolved]
  - Fall [Unknown]
  - Skin abrasion [Unknown]
  - Spinal operation [Unknown]
  - Influenza [Unknown]
  - Arthralgia [Recovered/Resolved]
  - Skin disorder [Not Recovered/Not Resolved]
  - Stoma site irritation [Not Recovered/Not Resolved]
  - Bedridden [Recovered/Resolved]
  - Hyperhidrosis [Not Recovered/Not Resolved]
  - Diverticulitis [Recovered/Resolved]
  - Wound infection [Recovered/Resolved]
  - Gait disturbance [Not Recovered/Not Resolved]
  - Fungal skin infection [Not Recovered/Not Resolved]
  - Foot deformity [Unknown]
  - Pyrexia [Recovered/Resolved]
  - Atrial fibrillation [Recovered/Resolved]
  - Malaise [Unknown]
  - Haematoma [Unknown]
  - Contusion [Not Recovered/Not Resolved]

NARRATIVE: CASE EVENT DATE: 2014
